FAERS Safety Report 10591955 (Version 16)
Quarter: 2015Q4

REPORT INFORMATION
  Report Type: Report from Study
  Country: LB (occurrence: LB)
  Receive Date: 20141119
  Receipt Date: 20151007
  Transmission Date: 20160304
  Serious: Yes (Life-Threatening, Hospitalization, Disabling)
  Sender: FDA-Public Use
  Company Number: LB-ROCHE-1488244

PATIENT
  Age: 72 Year
  Sex: Male
  Weight: 66 kg

DRUGS (19)
  1. TRASTUZUMAB [Suspect]
     Active Substance: TRASTUZUMAB
     Indication: HER-2 POSITIVE BREAST CANCER
     Dosage: LOADING DOSE (528MG)
     Route: 042
     Dates: start: 20140402, end: 20140402
  2. TRASTUZUMAB [Suspect]
     Active Substance: TRASTUZUMAB
     Dosage: LAST DOSE GIVEN BEFORE SAE WAS ON 06/NOV/2014.?MAINTENANCE DOSE
     Route: 042
     Dates: start: 20140423, end: 20141106
  3. KYTRIL [Concomitant]
     Active Substance: GRANISETRON HYDROCHLORIDE
     Dosage: PREMEDICATION ON DAY 1 AND DAY2 OF CHEMO
     Route: 042
     Dates: start: 20140401, end: 20150513
  4. PREDNISONE. [Concomitant]
     Active Substance: PREDNISONE
     Route: 065
     Dates: start: 20140529, end: 20140604
  5. KYTRIL [Concomitant]
     Active Substance: GRANISETRON HYDROCHLORIDE
     Indication: NAUSEA
     Dosage: ONE DAY POST CHEMO
     Route: 065
     Dates: start: 20140401, end: 20150513
  6. GABAPENTIN. [Concomitant]
     Active Substance: GABAPENTIN
     Route: 065
     Dates: start: 20150120
  7. SOLU-MEDROL [Concomitant]
     Active Substance: METHYLPREDNISOLONE SODIUM SUCCINATE
     Dosage: PREMEDICATION ON DAY 1 AND 2
     Route: 065
     Dates: start: 20140401, end: 20141106
  8. ZANTAC [Concomitant]
     Active Substance: RANITIDINE HYDROCHLORIDE
     Indication: PROPHYLAXIS
     Dosage: PREMEDICATION ON DAY 1 AND DAY 2 OF CHEMO
     Route: 065
     Dates: start: 20140401, end: 20141106
  9. MEDIHONEY [Concomitant]
     Active Substance: HONEY
     Dosage: ONCE DAILY
     Route: 065
     Dates: start: 20141028, end: 20141106
  10. PERTUZUMAB [Suspect]
     Active Substance: PERTUZUMAB
     Indication: HER-2 POSITIVE BREAST CANCER
     Dosage: LOADING DOSE
     Route: 042
     Dates: start: 20140401, end: 20140401
  11. DOCETAXEL. [Suspect]
     Active Substance: DOCETAXEL
     Indication: HER-2 POSITIVE BREAST CANCER
     Dosage: LAST DOSE PRIOR TO EVENT 25/SEP/2014
     Route: 042
     Dates: start: 20140402, end: 20140925
  12. MOTILIUM [Concomitant]
     Active Substance: DOMPERIDONE
     Indication: NAUSEA
     Dosage: ONE WEEK POST CHEMO
     Route: 065
     Dates: start: 20140401, end: 20150513
  13. FEXOFENADINE [Concomitant]
     Active Substance: FEXOFENADINE\FEXOFENADINE HYDROCHLORIDE
     Route: 065
     Dates: start: 20140331, end: 20150513
  14. ZALDIAR [Concomitant]
     Active Substance: ACETAMINOPHEN\TRAMADOL HYDROCHLORIDE
     Dosage: 2 PILLS
     Route: 065
     Dates: start: 20141105, end: 20150304
  15. PERTUZUMAB [Suspect]
     Active Substance: PERTUZUMAB
     Dosage: MAINTENANCE DOSE?LAST DOSE PRIOR TO SAE WAS GIVEN ON 24/SEP/2014.?LAST DOSE PRIOR TO SAE WAS GIVEN O
     Route: 042
     Dates: start: 20140422, end: 20141105
  16. PREDNISONE. [Concomitant]
     Active Substance: PREDNISONE
     Indication: HYPERSENSITIVITY
     Dosage: FOR FIVE DAYS
     Route: 065
     Dates: start: 20140331, end: 20150513
  17. KYTRIL [Concomitant]
     Active Substance: GRANISETRON HYDROCHLORIDE
     Dosage: 2 MG FOR 2 DAYS POST CHEMO
     Route: 065
     Dates: start: 20140402, end: 20150513
  18. ESTECINA [Concomitant]
     Indication: GANGRENE
     Route: 065
     Dates: start: 20141028, end: 20141106
  19. TWYNSTA [Concomitant]
     Active Substance: AMLODIPINE BESYLATE\TELMISARTAN
     Dosage: DOSE:80/5
     Route: 065
     Dates: start: 20141214

REACTIONS (2)
  - Gangrene [Recovered/Resolved with Sequelae]
  - Osteomyelitis [Recovered/Resolved with Sequelae]

NARRATIVE: CASE EVENT DATE: 20141105
